FAERS Safety Report 23401260 (Version 1)
Quarter: 2024Q1

REPORT INFORMATION
  Report Type: Spontaneous
  Country: JP (occurrence: None)
  Receive Date: 20240115
  Receipt Date: 20240115
  Transmission Date: 20240409
  Serious: Yes (Other)
  Sender: FDA-Public Use
  Company Number: JP-Orion Corporation ORION PHARMA-ENTC2023-0206

PATIENT
  Age: 75 Year
  Sex: Female
  Weight: 36 kg

DRUGS (4)
  1. STALEVO [Suspect]
     Active Substance: CARBIDOPA\ENTACAPONE\LEVODOPA
     Indication: Parkinson^s disease
     Dosage: LCE: (50MG/ 5MG/ 100MG); IN THE MORNING
  2. STALEVO [Suspect]
     Active Substance: CARBIDOPA\ENTACAPONE\LEVODOPA
     Dosage: LCE: (50MG/ 5MG/ 100MG); IN THE MORNING
  3. STALEVO [Suspect]
     Active Substance: CARBIDOPA\ENTACAPONE\LEVODOPA
     Dosage: LCE: (100MG/ 10MG/ 100MG);  5 TABLETS DIVIDE IN 5 DOSES EVERY 4 HOURS
     Dates: start: 20231202
  4. CARBAMAZEPINE [Concomitant]
     Active Substance: CARBAMAZEPINE

REACTIONS (7)
  - Parkinson^s disease [Unknown]
  - Melaena [Unknown]
  - Haematuria [Unknown]
  - Urinary tract infection [Unknown]
  - Myalgia [Unknown]
  - Asthenia [Unknown]
  - Physical deconditioning [Unknown]
